FAERS Safety Report 21512298 (Version 1)
Quarter: 2022Q4

REPORT INFORMATION
  Report Type: Spontaneous
  Country: CA (occurrence: CA)
  Receive Date: 20221027
  Receipt Date: 20221027
  Transmission Date: 20230112
  Serious: Yes (Other)
  Sender: FDA-Public Use
  Company Number: CA-JNJFOC-20221044636

PATIENT
  Age: 63 Year
  Sex: Female

DRUGS (4)
  1. IMODIUM [Suspect]
     Active Substance: LOPERAMIDE HYDROCHLORIDE
     Indication: Prophylaxis against diarrhoea
     Route: 065
  2. NERLYNX [Suspect]
     Active Substance: NERATINIB
     Indication: Breast cancer
     Route: 048
  3. NERLYNX [Suspect]
     Active Substance: NERATINIB
     Route: 048
  4. NERLYNX [Suspect]
     Active Substance: NERATINIB
     Route: 048

REACTIONS (7)
  - Neuropathy peripheral [Unknown]
  - Blister [Unknown]
  - Blister rupture [Unknown]
  - Constipation [Unknown]
  - Diarrhoea [Unknown]
  - Dyspepsia [Unknown]
  - Fatigue [Unknown]
